FAERS Safety Report 8514123-9 (Version None)
Quarter: 2012Q3

REPORT INFORMATION
  Report Type: 
  Country: None (occurrence: None)
  Receive Date: 20120717
  Receipt Date: 20120709
  Transmission Date: 20120928
  Serious: Yes (Other)
  Sender: FDA-Public Use
  Company Number: GB-JNJFOC-20120516353

PATIENT
  Sex: Female
  Weight: 87 kg

DRUGS (7)
  1. MIRTAZAPINE [Concomitant]
     Indication: DEPRESSION
     Route: 048
  2. ACYCLOVIR [Concomitant]
     Indication: HERPES VIRUS INFECTION
     Route: 065
  3. PREZISTA [Suspect]
     Indication: HIV INFECTION
     Dosage: ONCE EVERY NIGHT
     Route: 048
     Dates: start: 20111116
  4. SEPTRA [Concomitant]
     Indication: HIV INFECTION
     Route: 065
  5. RITONAVIR [Concomitant]
     Indication: HIV INFECTION
     Route: 065
     Dates: start: 20111116
  6. CITALOPRAM HYDROBROMIDE [Concomitant]
     Indication: DEPRESSION
     Route: 065
  7. TRUVADA [Concomitant]
     Indication: HIV INFECTION
     Route: 048

REACTIONS (2)
  - WEIGHT INCREASED [None]
  - CD4 LYMPHOCYTES DECREASED [None]
